FAERS Safety Report 5013042-2 (Version None)
Quarter: 2006Q2

REPORT INFORMATION
  Report Type: 
  Country: None (occurrence: None)
  Receive Date: 20060530
  Receipt Date: 20060206
  Transmission Date: 20061013
  Serious: Yes (Life-Threatening)
  Sender: FDA-Public Use
  Company Number: US-GLAXOSMITHKLINE-A0592686A

PATIENT
  Age: 49 Year
  Sex: Male
  Weight: 98.2 kg

DRUGS (3)
  1. WELLBUTRIN XL [Suspect]
     Route: 048
     Dates: start: 20051024, end: 20051031
  2. CYMBALTA [Concomitant]
  3. PAIN MEDICATION [Concomitant]

REACTIONS (1)
  - RASH [None]
